FAERS Safety Report 12313426 (Version 2)
Quarter: 2016Q2

REPORT INFORMATION
  Report Type: Spontaneous
  Country: US (occurrence: US)
  Receive Date: 20160428
  Receipt Date: 20160530
  Transmission Date: 20160815
  Serious: Yes (Other)
  Sender: FDA-Public Use
  Company Number: US-PFIZER INC-2016230828

PATIENT
  Age: 60 Year
  Sex: Female
  Weight: 51 kg

DRUGS (3)
  1. JAKAFI [Suspect]
     Active Substance: RUXOLITINIB
     Dosage: 10 MG, 2X/DAY
     Route: 048
     Dates: start: 201512
  2. JAKAFI [Suspect]
     Active Substance: RUXOLITINIB
     Indication: MYELOID METAPLASIA
     Dosage: 10 -15MG, TWICE DAILY
     Route: 048
     Dates: start: 2015
  3. JAKAFI [Suspect]
     Active Substance: RUXOLITINIB
     Indication: MYELOFIBROSIS
     Dosage: 15 MG, 2X/DAY
     Route: 048
     Dates: start: 201407

REACTIONS (1)
  - Polyarthritis [Recovering/Resolving]

NARRATIVE: CASE EVENT DATE: 2015
